FAERS Safety Report 15265223 (Version 1)
Quarter: 2018Q3

REPORT INFORMATION
  Report Type: Spontaneous
  Country: US (occurrence: US)
  Receive Date: 20180810
  Receipt Date: 20180810
  Transmission Date: 20181010
  Serious: No
  Sender: FDA-Public Use
  Company Number: US-MYLANLABS-2018M1059678

PATIENT
  Age: 70 Year
  Sex: Female
  Weight: 57 kg

DRUGS (1)
  1. CLONIDINE TRANSDERMAL SYSTEM [Suspect]
     Active Substance: CLONIDINE
     Indication: HYPERTENSION
     Dosage: UNK
     Route: 062

REACTIONS (8)
  - Drug ineffective [Recovered/Resolved]
  - Application site erythema [Unknown]
  - Product adhesion issue [Recovered/Resolved]
  - Product quality issue [Unknown]
  - Blood pressure increased [Recovered/Resolved]
  - Drug dispensing error [Unknown]
  - Wrong technique in product usage process [Unknown]
  - Application site pruritus [Unknown]

NARRATIVE: CASE EVENT DATE: 201807
